FAERS Safety Report 19205906 (Version 1)
Quarter: 2021Q2

REPORT INFORMATION
  Report Type: Spontaneous
  Country: CA (occurrence: CA)
  Receive Date: 20210503
  Receipt Date: 20210503
  Transmission Date: 20210717
  Serious: Yes (Life-Threatening, Other)
  Sender: FDA-Public Use
  Company Number: CA-AUROBINDO-AUR-APL-2021-016952

PATIENT
  Age: 67 Year
  Sex: Male

DRUGS (1)
  1. MEROPENEM INJECTION [Suspect]
     Active Substance: MEROPENEM
     Indication: BACTERIAL INFECTION
     Dosage: UNK
     Route: 065

REACTIONS (3)
  - Renal tubular necrosis [Not Recovered/Not Resolved]
  - Cross sensitivity reaction [Not Recovered/Not Resolved]
  - Blood creatinine increased [Not Recovered/Not Resolved]
